FAERS Safety Report 21571673 (Version 7)
Quarter: 2023Q2

REPORT INFORMATION
  Report Type: Report from Study
  Country: US (occurrence: US)
  Receive Date: 20221109
  Receipt Date: 20230619
  Transmission Date: 20230721
  Serious: Yes (Hospitalization)
  Sender: FDA-Public Use
  Company Number: US-TAKEDA-US201940206

PATIENT
  Age: 20 Year
  Sex: Male
  Weight: 81.65 kg

DRUGS (8)
  1. IDURSULFASE [Suspect]
     Active Substance: IDURSULFASE
     Indication: Mucopolysaccharidosis II
     Dosage: 42 MILLIGRAM, Q2WEEKS
     Route: 042
     Dates: start: 20151021
  2. IDURSULFASE [Suspect]
     Active Substance: IDURSULFASE
     Indication: Mucopolysaccharidosis
     Dosage: UNK UNK, Q3WEEKS
     Route: 042
     Dates: start: 20151021
  3. IDURSULFASE [Suspect]
     Active Substance: IDURSULFASE
     Dosage: 42 MILLIGRAM, Q3WEEKS
     Route: 042
     Dates: start: 20151021
  4. IDURSULFASE [Suspect]
     Active Substance: IDURSULFASE
     Dosage: 42 MILLIGRAM, Q3WEEKS
     Route: 042
     Dates: start: 201510
  5. IDURSULFASE [Suspect]
     Active Substance: IDURSULFASE
     Dosage: 42 MILLIGRAM, Q3WEEKS
     Route: 042
     Dates: start: 201608
  6. IDURSULFASE [Suspect]
     Active Substance: IDURSULFASE
     Dosage: 42 MILLIGRAM, Q3WEEKS
     Route: 042
     Dates: start: 201702
  7. IDURSULFASE [Suspect]
     Active Substance: IDURSULFASE
     Dosage: 42 MILLIGRAM, Q3WEEKS
     Route: 042
     Dates: start: 20171211
  8. IDURSULFASE [Suspect]
     Active Substance: IDURSULFASE
     Dosage: 42 MILLIGRAM, Q3WEEKS
     Route: 042
     Dates: start: 202012

REACTIONS (12)
  - Cystitis [Unknown]
  - Respiratory disorder [Unknown]
  - Bedridden [Unknown]
  - Mood swings [Unknown]
  - Agitation [Unknown]
  - Gait disturbance [Unknown]
  - Loss of personal independence in daily activities [Unknown]
  - Incontinence [Unknown]
  - Disease progression [Unknown]
  - Weight increased [Unknown]
  - Poor venous access [Unknown]
  - Product dose omission issue [Unknown]

NARRATIVE: CASE EVENT DATE: 20221020
